FAERS Safety Report 4851318-X (Version None)
Quarter: 2005Q4

REPORT INFORMATION
  Report Type: 
  Country: None (occurrence: None)
  Receive Date: 20051208
  Receipt Date: 20051128
  Transmission Date: 20060501
  Serious: Yes (Hospitalization)
  Sender: FDA-Public Use
  Company Number: TIF2005A00020

PATIENT
  Age: 72 Year
  Sex: Male

DRUGS (4)
  1. ACTOS [Suspect]
     Indication: DIABETES MELLITUS
     Dosage: (30 MG)
  2. METFORMIN [Concomitant]
  3. SULFANILUREA [Concomitant]
  4. ANTIHYPERTENSIVE [Concomitant]

REACTIONS (3)
  - ATRIAL FIBRILLATION [None]
  - PLEURAL EFFUSION [None]
  - WEIGHT INCREASED [None]
